FAERS Safety Report 4314945-4 (Version None)
Quarter: 2004Q1

REPORT INFORMATION
  Report Type: 
  Country: None (occurrence: None)
  Receive Date: 20040310
  Receipt Date: 20040310
  Transmission Date: 20041129
  Serious: Yes (Hospitalization)
  Sender: FDA-Public Use
  Company Number: None

PATIENT
  Sex: Male
  Weight: 92.6 kg

DRUGS (8)
  1. CRESTOR [Suspect]
     Indication: HYPERLIPIDAEMIA
     Dosage: 20MG DAILY ORAL
     Route: 048
     Dates: start: 20040102, end: 20040303
  2. CLOZARIL [Concomitant]
  3. DEPAKOTE [Concomitant]
  4. GLUCOPHAGE [Concomitant]
  5. TOPAMAX [Concomitant]
  6. WELLBUTRIN [Concomitant]
  7. SEROQUEL [Concomitant]
  8. TRAMADOL HCL [Concomitant]

REACTIONS (4)
  - HYPERHIDROSIS [None]
  - MYALGIA [None]
  - NAUSEA [None]
  - PYREXIA [None]
